FAERS Safety Report 7784176-4 (Version None)
Quarter: 2011Q3

REPORT INFORMATION
  Report Type: 
  Country: None (occurrence: None)
  Receive Date: 20110928
  Receipt Date: 20110915
  Transmission Date: 20111222
  Serious: Yes (Hospitalization, Other)
  Sender: FDA-Public Use
  Company Number: US-ELI_LILLY_AND_COMPANY-US201007002951

PATIENT
  Sex: Male

DRUGS (25)
  1. FORTEO [Suspect]
     Dosage: 20 UG, QD
     Route: 065
  2. IMODIUM MULTI-SYMPTOM RELIEF [Concomitant]
     Indication: ANTIDIARRHOEAL SUPPORTIVE CARE
  3. PREDNISONE [Concomitant]
  4. FISH OIL [Concomitant]
     Dosage: UNK, UNKNOWN
     Route: 065
  5. ANTIDIARRHEAL [Concomitant]
     Dosage: UNK, UNKNOWN
     Route: 065
  6. FORTEO [Suspect]
     Dosage: 20 UG, QD
     Route: 065
     Dates: start: 20110101
  7. COZAAR [Concomitant]
  8. THYROID THERAPY [Concomitant]
  9. VITAMIN D [Concomitant]
     Dosage: 1.25 MG, UNKNOWN
  10. FOLIC ACID [Concomitant]
  11. METHOTREXATE [Concomitant]
     Dosage: UNK, UNKNOWN
     Route: 065
  12. TRIAMTEX [Concomitant]
     Dosage: UNK, UNKNOWN
     Route: 065
  13. REMICAIDE [Concomitant]
     Dosage: UNK, UNKNOWN
     Route: 065
  14. FORTEO [Suspect]
     Indication: BONE DISORDER
     Dosage: 20 UG, QD
     Route: 065
     Dates: start: 20100208
  15. FORTEO [Suspect]
     Dosage: 20 UG, QD
     Route: 065
  16. FORTEO [Suspect]
     Dosage: 20 UG, QD
     Route: 065
     Dates: start: 20101106
  17. CENTRUM SILVER [Concomitant]
  18. ASPIRIN [Concomitant]
     Dosage: 81 D/F, 1/2 OF 81
  19. POLYETHYLENE GLYCOL [Concomitant]
     Dosage: UNK, UNKNOWN
     Route: 065
  20. GABAPENTIN [Concomitant]
  21. ALLOPURINOL [Concomitant]
  22. TRAMADOL [Concomitant]
     Indication: PAIN
  23. FORTEO [Suspect]
     Dosage: 20 UG, QD
     Route: 065
     Dates: end: 20100618
  24. MAXZIDE [Concomitant]
  25. CALCIUM 600 PLUS VITAMIN D [Concomitant]

REACTIONS (12)
  - LACTOSE INTOLERANCE [None]
  - ASTHENIA [None]
  - FRACTURE NONUNION [None]
  - PAIN [None]
  - NEPHROLITHIASIS [None]
  - GAIT DISTURBANCE [None]
  - INTENTIONAL DRUG MISUSE [None]
  - MEDICATION ERROR [None]
  - TRANSFUSION [None]
  - ARTHRALGIA [None]
  - BACK DISORDER [None]
  - DEPRESSION [None]
